FAERS Safety Report 6554580-0 (Version None)
Quarter: 2010Q1

REPORT INFORMATION
  Report Type: 
  Country: None (occurrence: None)
  Receive Date: 20100127
  Receipt Date: 20100120
  Transmission Date: 20100710
  Serious: Yes (Life-Threatening, Other)
  Sender: FDA-Public Use
  Company Number: JP-ELI_LILLY_AND_COMPANY-JP200909003817

PATIENT
  Age: 37 Year
  Sex: Male
  Weight: 69.4 kg

DRUGS (2)
  1. HUMULIN R [Suspect]
     Indication: DIABETES MELLITUS
     Dosage: MIN.5IU/H, MAX.10IU/H
     Route: 042
  2. SALINE [Concomitant]
     Route: 042

REACTIONS (2)
  - CARDIAC ARREST [None]
  - HYPOPHOSPHATAEMIA [None]
